FAERS Safety Report 9431862 (Version 2)
Quarter: 2013Q3

REPORT INFORMATION
  Report Type: Spontaneous
  Country: JP (occurrence: JP)
  Receive Date: 20130731
  Receipt Date: 20130808
  Transmission Date: 20140515
  Serious: Yes (Hospitalization)
  Sender: FDA-Public Use
  Company Number: PHHY2013JP080212

PATIENT
  Age: 78 Year
  Sex: Female

DRUGS (1)
  1. NEORAL [Suspect]
     Indication: MYASTHENIA GRAVIS
     Dosage: 50 DF (2500 MG)
     Route: 048
     Dates: start: 20130724, end: 20130724

REACTIONS (1)
  - Intentional overdose [Recovered/Resolved]
